FAERS Safety Report 24055359 (Version 1)
Quarter: 2024Q3

REPORT INFORMATION
  Report Type: Spontaneous
  Country: US (occurrence: None)
  Receive Date: 20240703
  Receipt Date: 20240703
  Transmission Date: 20241016
  Serious: Yes (unspecified)
  Sender: Public
  Company Number: None

PATIENT
  Age: 50 Year
  Sex: Female

DRUGS (1)
  1. INSULIN NOS [Suspect]
     Active Substance: INSULIN NOS

REACTIONS (2)
  - Accidental overdose [None]
  - Incorrect drug administration rate [None]

NARRATIVE: CASE EVENT DATE: 20240531
